FAERS Safety Report 22272495 (Version 2)
Quarter: 2023Q2

REPORT INFORMATION
  Report Type: Spontaneous
  Country: US (occurrence: US)
  Receive Date: 20230502
  Receipt Date: 20230508
  Transmission Date: 20230721
  Serious: No
  Sender: FDA-Public Use
  Company Number: US-002147023-NVSC2023US097849

PATIENT
  Age: 82 Year
  Sex: Female

DRUGS (2)
  1. LEQVIO [Suspect]
     Active Substance: INCLISIRAN SODIUM
     Indication: Type IIa hyperlipidaemia
     Dosage: 284 MG, OTHER, FIRST DOSE, AGAIN AT 3 MONTHS AND THEN EVERY 6 MONTHS
     Route: 058
  2. LEQVIO [Suspect]
     Active Substance: INCLISIRAN SODIUM
     Indication: Arteriosclerosis

REACTIONS (2)
  - Incorrect route of product administration [Unknown]
  - Infusion site pain [Unknown]
